FAERS Safety Report 4364796-X (Version None)
Quarter: 2004Q2

REPORT INFORMATION
  Report Type: 
  Country: None (occurrence: None)
  Receive Date: 20040526
  Receipt Date: 20030630
  Transmission Date: 20050107
  Serious: No
  Sender: FDA-Public Use
  Company Number: US-GLAXOSMITHKLINE-A0415852A

PATIENT
  Age: 74 Year
  Sex: Female

DRUGS (5)
  1. LOTRONEX [Suspect]
     Indication: IRRITABLE BOWEL SYNDROME
     Dosage: 1TAB TWICE PER DAY
     Route: 048
     Dates: start: 20000609, end: 20000810
  2. DITROPAN [Concomitant]
  3. AVALIDE [Concomitant]
  4. CARDURA [Concomitant]
  5. CARBATROL [Concomitant]

REACTIONS (2)
  - CONSTIPATION [None]
  - GASTRIC DISORDER [None]
